FAERS Safety Report 11202906 (Version 2)
Quarter: 2015Q3

REPORT INFORMATION
  Report Type: Spontaneous
  Country: JP (occurrence: JP)
  Receive Date: 20150619
  Receipt Date: 20150707
  Transmission Date: 20151125
  Serious: Yes (Life-Threatening, Other)
  Sender: FDA-Public Use
  Company Number: JP-BRISTOL-MYERS SQUIBB COMPANY-21591839

PATIENT
  Age: 53 Year
  Sex: Female
  Weight: 67.4 kg

DRUGS (21)
  1. ABILIFY [Suspect]
     Active Substance: ARIPIPRAZOLE
     Dosage: 24 MG, QD
     Route: 048
     Dates: start: 20140920, end: 20141024
  2. ABILIFY [Suspect]
     Active Substance: ARIPIPRAZOLE
     Dosage: 30 MG, QD
     Route: 048
     Dates: start: 20111211, end: 20120223
  3. ABILIFY [Suspect]
     Active Substance: ARIPIPRAZOLE
     Dosage: 18 MG, QD
     Route: 048
     Dates: start: 20141025, end: 20141107
  4. ZYPREXA [Suspect]
     Active Substance: OLANZAPINE
     Dosage: 10 MG, QD
     Route: 048
     Dates: start: 20141011, end: 20141121
  5. MAGMITT [Concomitant]
     Active Substance: MAGNESIUM OXIDE
     Indication: PRODUCT USED FOR UNKNOWN INDICATION
     Dosage: 330 MG, UNK
     Route: 065
     Dates: start: 20120517, end: 20141212
  6. DAIKENTYUTO [Suspect]
     Active Substance: HERBALS
     Dosage: 7.5 G, QD
     Route: 048
     Dates: end: 20140908
  7. DAIKENTYUTO [Suspect]
     Active Substance: HERBALS
     Dosage: 15 G, QD
     Route: 048
     Dates: start: 20140909, end: 20140917
  8. ABILIFY [Suspect]
     Active Substance: ARIPIPRAZOLE
     Dosage: 12 MG, QD
     Route: 048
     Dates: start: 20141108, end: 20141121
  9. NITRAZEPAM [Concomitant]
     Active Substance: NITRAZEPAM
     Indication: PRODUCT USED FOR UNKNOWN INDICATION
     Dosage: 5 MG, UNK
     Route: 065
     Dates: start: 20131225
  10. ABILIFY [Suspect]
     Active Substance: ARIPIPRAZOLE
     Indication: SCHIZOPHRENIA
     Dosage: 12 MG, QD
     Route: 048
     Dates: start: 20111203, end: 20111210
  11. ABILIFY [Suspect]
     Active Substance: ARIPIPRAZOLE
     Indication: SCHIZOPHRENIA
     Dosage: 30 MG, QD
     Route: 048
     Dates: start: 20120224, end: 20140919
  12. ABILIFY [Suspect]
     Active Substance: ARIPIPRAZOLE
     Dosage: 6 MG, QD
     Route: 048
     Dates: start: 20141122, end: 20141205
  13. ABILIFY [Suspect]
     Active Substance: ARIPIPRAZOLE
     Indication: SCHIZOPHRENIA
     Dosage: 30 MG, QD
     Route: 048
     Dates: start: 20120224, end: 20131225
  14. ZYPREXA [Suspect]
     Active Substance: OLANZAPINE
     Dosage: 10-20MG/DAY
     Route: 048
     Dates: start: 20111115, end: 20140929
  15. VEGETAMIN B [Concomitant]
     Active Substance: CHLORPROMAZINE HYDROCHLORIDE\PHENOBARBITAL\PROMETHAZINE
     Indication: PRODUCT USED FOR UNKNOWN INDICATION
     Dosage: UNK
     Route: 065
     Dates: start: 20140714
  16. ZYPREXA [Suspect]
     Active Substance: OLANZAPINE
     Dosage: 15 MG, QD
     Route: 048
     Dates: start: 20140927, end: 20141010
  17. ZYPREXA [Suspect]
     Active Substance: OLANZAPINE
     Dosage: 15 MG, QD
     Route: 048
     Dates: start: 20141122
  18. DAIKENTYUTO [Suspect]
     Active Substance: HERBALS
     Indication: CONSTIPATION
     Dosage: 15 G, QD
     Route: 048
     Dates: start: 20111203
  19. DAIKENTYUTO [Suspect]
     Active Substance: HERBALS
     Dosage: 7.5 G, QD
     Route: 048
     Dates: start: 20140918, end: 20140925
  20. DAIKENTYUTO [Suspect]
     Active Substance: HERBALS
     Dosage: 15 G, QD
     Route: 048
     Dates: start: 20140926, end: 20141212
  21. ZYPREXA [Suspect]
     Active Substance: OLANZAPINE
     Indication: SCHIZOPHRENIA
     Dosage: 20 MG, QD
     Route: 048
     Dates: start: 20090515

REACTIONS (2)
  - Neutropenia [Recovering/Resolving]
  - Thrombocytopenia [Recovered/Resolved]

NARRATIVE: CASE EVENT DATE: 20141001
